FAERS Safety Report 4716379-7 (Version None)
Quarter: 2005Q3

REPORT INFORMATION
  Report Type: 
  Country: None (occurrence: None)
  Receive Date: 20050714
  Receipt Date: 20050704
  Transmission Date: 20060218
  Serious: Yes (Life-Threatening, Hospitalization)
  Sender: FDA-Public Use
  Company Number: GXKR2005GB01296

PATIENT
  Age: 64 Year
  Sex: Female
  Weight: 80 kg

DRUGS (5)
  1. METFORMIN HCL [Suspect]
     Indication: DIABETES MELLITUS NON-INSULIN-DEPENDENT
     Dosage: 500 MG, QID, ORAL
     Route: 048
     Dates: start: 19940101
  2. CIMETIDINE [Suspect]
     Indication: ABDOMINAL PAIN UPPER
     Dosage: 400 MG, BID, ORAL
     Route: 048
     Dates: start: 19990814
  3. ORLISTAT [Suspect]
     Indication: OBESITY
     Dosage: 120 MG, TID, ORAL
     Route: 048
     Dates: start: 19990622, end: 19990914
  4. CO-AMILOFRUSE (AMILORIDE HYDROCHLORIDE, FUROSEMIDE) [Concomitant]
  5. ASPIRIN [Concomitant]

REACTIONS (22)
  - ABDOMINAL PAIN [None]
  - ACUTE PRERENAL FAILURE [None]
  - AGITATION [None]
  - ASTHENIA [None]
  - BLOOD LACTIC ACID INCREASED [None]
  - CENTRAL VENOUS PRESSURE ABNORMAL [None]
  - CIRCULATORY COLLAPSE [None]
  - CONFUSIONAL STATE [None]
  - DEPRESSED LEVEL OF CONSCIOUSNESS [None]
  - DIALYSIS [None]
  - DIARRHOEA [None]
  - DIZZINESS [None]
  - DRUG INTERACTION [None]
  - DYSARTHRIA [None]
  - HYPOTENSION [None]
  - LACTIC ACIDOSIS [None]
  - MALAISE [None]
  - METABOLIC ACIDOSIS [None]
  - RENAL FAILURE ACUTE [None]
  - ULCER [None]
  - VISION BLURRED [None]
  - VOMITING [None]
